FAERS Safety Report 12731553 (Version 3)
Quarter: 2019Q1

REPORT INFORMATION
  Report Type: Spontaneous
  Country: JP (occurrence: JP)
  Receive Date: 20160912
  Receipt Date: 20190208
  Transmission Date: 20190417
  Serious: Yes (Hospitalization, Other)
  Sender: FDA-Public Use
  Company Number: JP-UNITED THERAPEUTICS-UNT-2016-014196

PATIENT
  Age: 63 Year
  Sex: Female
  Weight: 51.6 kg

DRUGS (13)
  1. REMODULIN [Suspect]
     Active Substance: TREPROSTINIL
     Dosage: 0.0567 ?G/KG, CONTINUING
     Route: 058
  2. ADEMPAS [Concomitant]
     Active Substance: RIOCIGUAT
     Indication: PULMONARY ARTERIAL HYPERTENSION
     Dosage: 7.5 MG
     Route: 048
     Dates: start: 20160725
  3. PRAMIEL                            /00041901/ [Concomitant]
     Active Substance: METOCLOPRAMIDE HYDROCHLORIDE
     Indication: PROPHYLAXIS
     Dosage: 10 MG/DAY
     Route: 048
     Dates: start: 20160831, end: 20160913
  4. BROTIZOLAM [Concomitant]
     Active Substance: BROTIZOLAM
     Indication: PROPHYLAXIS
     Dosage: UNK
     Route: 048
     Dates: start: 20160820, end: 20160913
  5. TRAZODONE HYDROCHLORIDE. [Concomitant]
     Active Substance: TRAZODONE HYDROCHLORIDE
     Indication: PROPHYLAXIS
     Dosage: UNK
     Route: 048
     Dates: start: 20160831
  6. REMODULIN [Suspect]
     Active Substance: TREPROSTINIL
     Dosage: 0.0116 ?G/KG, CONTINUING
     Route: 058
  7. REMODULIN [Suspect]
     Active Substance: TREPROSTINIL
     Dosage: 0.0416 ?G/KG, CONTINUING
     Route: 058
  8. REMODULIN [Suspect]
     Active Substance: TREPROSTINIL
     Indication: PULMONARY ARTERIAL HYPERTENSION
     Dosage: UNK
     Route: 058
     Dates: start: 20160725
  9. REMODULIN [Suspect]
     Active Substance: TREPROSTINIL
     Dosage: 0.0466 ?G/KG, CONTINUING
     Route: 058
  10. OPSUMIT [Concomitant]
     Active Substance: MACITENTAN
     Indication: PULMONARY ARTERIAL HYPERTENSION
     Dosage: 10 MG
     Route: 048
     Dates: start: 20160704
  11. REMODULIN [Suspect]
     Active Substance: TREPROSTINIL
     Dosage: 0.0383 ?G/KG, CONTINUING
     Route: 058
  12. L-CARBOCYSTEINE [Concomitant]
     Active Substance: CARBOCYSTEINE
     Indication: PROPHYLAXIS
     Dosage: 1500 MG/DAY
     Route: 048
     Dates: start: 20160901, end: 20161001
  13. MEILAX [Concomitant]
     Active Substance: ETHYL LOFLAZEPATE
     Indication: PROPHYLAXIS
     Dosage: UNK
     Route: 048
     Dates: start: 20160831, end: 20160913

REACTIONS (8)
  - Otitis media [Recovering/Resolving]
  - Infusion site pain [Recovering/Resolving]
  - Infusion site induration [Recovering/Resolving]
  - Groin pain [Recovering/Resolving]
  - Infusion site pruritus [Recovering/Resolving]
  - Enterocolitis [Not Recovered/Not Resolved]
  - Infusion site erythema [Recovered/Resolved]
  - Headache [Recovered/Resolved]

NARRATIVE: CASE EVENT DATE: 20160801
